FAERS Safety Report 23618691 (Version 2)
Quarter: 2024Q1

REPORT INFORMATION
  Report Type: Report from Study
  Country: US (occurrence: US)
  Receive Date: 20240311
  Receipt Date: 20240313
  Transmission Date: 20240410
  Serious: Yes (Hospitalization, Other)
  Sender: FDA-Public Use
  Company Number: US-ABBVIE-5674237

PATIENT
  Sex: Female

DRUGS (1)
  1. VENCLEXTA [Suspect]
     Active Substance: VENETOCLAX
     Indication: Anaemia
     Dosage: 400 MG, TAKE 4 TABLET(S) BY MOUTH (400MG) DAILY FOR 30 DAYS?FORM STRENGTH: 100 MILLIGRAM
     Route: 048

REACTIONS (2)
  - Chemotherapy [Unknown]
  - Off label use [Unknown]
